APPROVED DRUG PRODUCT: LIDOCAINE HYDROCHLORIDE
Active Ingredient: LIDOCAINE HYDROCHLORIDE
Strength: 1%
Dosage Form/Route: INJECTABLE;INJECTION
Application: A208474 | Product #001 | TE Code: AP
Applicant: B BRAUN MEDICAL INC
Approved: Aug 3, 2018 | RLD: No | RS: No | Type: RX